FAERS Safety Report 4680813-1 (Version None)
Quarter: 2005Q2

REPORT INFORMATION
  Report Type: 
  Country: None (occurrence: None)
  Receive Date: 20050603
  Receipt Date: 20050525
  Transmission Date: 20051028
  Serious: Yes (Death)
  Sender: FDA-Public Use
  Company Number: 200514924GDDC

PATIENT
  Age: 66 Year
  Sex: Male

DRUGS (1)
  1. ARAVA [Suspect]
     Indication: ARTHRITIS
     Dosage: DOSE: UNK

REACTIONS (1)
  - HEPATIC FAILURE [None]
